FAERS Safety Report 5823849-7 (Version None)
Quarter: 2008Q3

REPORT INFORMATION
  Report Type: 
  Country: None (occurrence: None)
  Receive Date: 20080725
  Receipt Date: 20080722
  Transmission Date: 20090109
  Serious: Yes (Death)
  Sender: FDA-Public Use
  Company Number: CO-GENENTECH-264984

PATIENT
  Age: 51 Year
  Sex: Female

DRUGS (1)
  1. ACTIVASE [Suspect]
     Indication: PULMONARY EMBOLISM
     Dosage: 10 MG, UNK
     Route: 040
     Dates: start: 20080719, end: 20080719

REACTIONS (1)
  - RESPIRATORY FAILURE [None]
